FAERS Safety Report 6547278-6 (Version None)
Quarter: 2010Q1

REPORT INFORMATION
  Report Type: 
  Country: None (occurrence: None)
  Receive Date: 20100122
  Receipt Date: 20100115
  Transmission Date: 20100710
  Serious: Yes (Hospitalization)
  Sender: FDA-Public Use
  Company Number: DE-TEVA-221292ISR

PATIENT
  Sex: Male
  Weight: 90 kg

DRUGS (1)
  1. GEMCITABINE [Suspect]
     Indication: CARCINOID TUMOUR OF THE PANCREAS
     Route: 042
     Dates: start: 20091014, end: 20091021

REACTIONS (3)
  - CHOLANGITIS SUPPURATIVE [None]
  - JAUNDICE CHOLESTATIC [None]
  - PYREXIA [None]
